FAERS Safety Report 6199606-1 (Version None)
Quarter: 2009Q2

REPORT INFORMATION
  Report Type: 
  Country: None (occurrence: None)
  Receive Date: 20090522
  Receipt Date: 20080513
  Transmission Date: 20091009
  Serious: No
  Sender: FDA-Public Use
  Company Number: A0727907A

PATIENT
  Sex: Male

DRUGS (2)
  1. BACTROBAN [Suspect]
     Route: 061
  2. BACTRIM [Concomitant]

REACTIONS (2)
  - ABSCESS [None]
  - EMPYEMA DRAINAGE [None]
